FAERS Safety Report 10585549 (Version 2)
Quarter: 2014Q4

REPORT INFORMATION
  Report Type: Report from Study
  Country: KR (occurrence: KR)
  Receive Date: 20141114
  Receipt Date: 20141114
  Transmission Date: 20150529
  Serious: Yes (Other)
  Sender: FDA-Public Use
  Company Number: KR-GLAXOSMITHKLINE-KR2014GSK015351

PATIENT
  Sex: Male

DRUGS (3)
  1. ENTECAVIR. [Suspect]
     Active Substance: ENTECAVIR
     Dosage: 1.0 MG, UNK
  2. ADEFOVIR [Suspect]
     Active Substance: ADEFOVIR
     Dosage: 10 MG, UNK
  3. LAMIVUDINE. [Suspect]
     Active Substance: LAMIVUDINE
     Indication: CHRONIC HEPATITIS B
     Dosage: 100 MG, QD

REACTIONS (3)
  - Genotype drug resistance test [Unknown]
  - Drug resistance [Unknown]
  - Viral infection [Unknown]
